FAERS Safety Report 4875106-3 (Version None)
Quarter: 2006Q1

REPORT INFORMATION
  Report Type: 
  Country: None (occurrence: None)
  Receive Date: 20060109
  Receipt Date: 20051228
  Transmission Date: 20060701
  Serious: Yes (Hospitalization)
  Sender: FDA-Public Use
  Company Number: FR-GLAXOSMITHKLINE-B0405107A

PATIENT
  Age: 74 Year
  Sex: Female

DRUGS (9)
  1. DEROXAT [Suspect]
     Dosage: 20MG PER DAY
     Route: 048
     Dates: end: 20051118
  2. IMOVANE [Suspect]
     Dosage: 7.5MG PER DAY
     Route: 048
  3. FUROSEMIDE [Suspect]
     Dosage: 20MG PER DAY
     Route: 048
     Dates: end: 20051113
  4. TRAMADOL HCL [Suspect]
     Dosage: 2UNIT PER DAY
     Route: 048
     Dates: end: 20051122
  5. CELECTOL [Suspect]
     Dosage: 100MG PER DAY
     Route: 048
  6. ATARAX [Suspect]
     Dosage: 50MG PER DAY
     Route: 048
     Dates: end: 20051120
  7. MODOPAR [Concomitant]
  8. TRIVASTAL [Concomitant]
  9. APROVEL [Concomitant]

REACTIONS (1)
  - PEMPHIGOID [None]
